FAERS Safety Report 15128166 (Version 1)
Quarter: 2018Q3

REPORT INFORMATION
  Report Type: Spontaneous
  Country: FR (occurrence: FR)
  Receive Date: 20180711
  Receipt Date: 20180711
  Transmission Date: 20181010
  Serious: Yes (Hospitalization, Other)
  Sender: FDA-Public Use
  Company Number: FR-UCBSA-2018029141

PATIENT
  Age: 88 Year
  Sex: Female

DRUGS (4)
  1. ENALAPRIL [Concomitant]
     Active Substance: ENALAPRIL
     Indication: BLOOD PRESSURE MEASUREMENT
     Dosage: 2.5 OR 5 MG
     Dates: start: 201709, end: 20171127
  2. IRBESARTAN HYDROCHLOROTHIAZIDE [Concomitant]
     Active Substance: HYDROCHLOROTHIAZIDE\IRBESARTAN
     Indication: BLOOD PRESSURE MEASUREMENT
     Dosage: 150/25 MG PER DAY
     Dates: start: 20171127
  3. LACOSAMIDE. [Suspect]
     Active Substance: LACOSAMIDE
     Indication: EPILEPSY
     Dosage: 50 MG, 2X/DAY (BID)
     Dates: start: 20171128, end: 20171204
  4. BISOPROLOL [Interacting]
     Active Substance: BISOPROLOL
     Indication: PRODUCT USED FOR UNKNOWN INDICATION
     Dosage: 1.25 MG PER DAY
     Dates: start: 201709, end: 20171204

REACTIONS (2)
  - Drug interaction [Unknown]
  - Atrioventricular block complete [Unknown]

NARRATIVE: CASE EVENT DATE: 2017
